FAERS Safety Report 9462110 (Version 1)
Quarter: 2013Q3

REPORT INFORMATION
  Report Type: Spontaneous
  Country: US (occurrence: None)
  Receive Date: 20130813
  Receipt Date: 20130813
  Transmission Date: 20140515
  Serious: Yes (Hospitalization)
  Sender: FDA-Public Use
  Company Number: 201308007

PATIENT
  Age: 77 Year
  Sex: Male
  Weight: 80.74 kg

DRUGS (3)
  1. TESTIM [Suspect]
     Indication: BLOOD TESTOSTERONE DECREASED
     Dosage: 50MG, 1 IN 1D, TRANSDERMAL
     Route: 062
  2. ADDERALL (DEXAMFETAMINE SULFATE) (DEXAMFETAMINE SULFATE) [Concomitant]
  3. METFORMIN (METFORMIN) (METFORMIN) [Concomitant]

REACTIONS (1)
  - Myocardial infarction [None]
